FAERS Safety Report 5288703-0 (Version None)
Quarter: 2007Q2

REPORT INFORMATION
  Report Type: 
  Country: None (occurrence: None)
  Receive Date: 20070405
  Receipt Date: 20070326
  Transmission Date: 20071010
  Serious: Yes (Hospitalization)
  Sender: FDA-Public Use
  Company Number: 2007AP01379

PATIENT
  Age: 27353 Day
  Sex: Female
  Weight: 62 kg

DRUGS (9)
  1. TENORMIN [Suspect]
     Indication: HYPERTENSION
     Dates: start: 20031114, end: 20070316
  2. CRESTOR [Suspect]
     Indication: HYPERCHOLESTEROLAEMIA
     Route: 048
     Dates: start: 20070217, end: 20070228
  3. LUPRAC [Suspect]
     Indication: CARDIAC FAILURE CONGESTIVE
     Dates: start: 20040722, end: 20070316
  4. MEVALOTIN [Concomitant]
     Dates: end: 20070217
  5. ADALAT [Concomitant]
     Indication: HYPERTENSION
     Dates: start: 20030123
  6. ADETPHOS [Concomitant]
     Indication: MENIERE'S DISEASE
     Route: 048
     Dates: start: 20030612
  7. RYTHMODAN R [Concomitant]
     Indication: ATRIAL FIBRILLATION
     Dates: start: 20030911
  8. PURSENNID [Concomitant]
     Indication: CONSTIPATION
     Dates: start: 20041016
  9. LIVALO [Concomitant]

REACTIONS (2)
  - DRUG INEFFECTIVE [None]
  - RHABDOMYOLYSIS [None]
